FAERS Safety Report 4518109-0 (Version None)
Quarter: 2004Q4

REPORT INFORMATION
  Report Type: 
  Country: None (occurrence: None)
  Receive Date: 20041130
  Receipt Date: 20041122
  Transmission Date: 20050328
  Serious: Yes (Death)
  Sender: FDA-Public Use
  Company Number: 2004-122507-NL

PATIENT
  Age: 69 Year
  Sex: Female

DRUGS (31)
  1. MIRTAZAPINE [Suspect]
     Dosage: 30 MG
     Dates: start: 20041014, end: 20041021
  2. ESCITALOPRAM [Concomitant]
  3. METOCLOPRAMIDE [Concomitant]
  4. HEPARIN-FRACTION [Concomitant]
  5. VALPROIC ACID [Concomitant]
  6. VELFAXINE HYDROCHLORIDE [Concomitant]
  7. LOPERAMIDE HYDROCHLORIDE [Concomitant]
  8. ATENOLOL [Concomitant]
  9. LISINOPRIL [Concomitant]
  10. PARACETAMOL [Concomitant]
  11. DEHYDRO SANOL TRI [Concomitant]
  12. ZOLPIDEM TARTRATE [Concomitant]
  13. ETILEFRINE HYDROCHLORIDE [Concomitant]
  14. ALBUMIN (HUMAN) [Concomitant]
  15. POTASSIUM CHLORIDE [Concomitant]
  16. CLINOMEL [Concomitant]
  17. ALIZAPRIDE [Concomitant]
  18. SODIUM CHLORIDE [Concomitant]
  19. FORTIMEL VANILLE [Concomitant]
  20. POTASSIUM CHLORIDE [Concomitant]
  21. AUGMENTIN '125' [Concomitant]
  22. PERFUSALGAN [Concomitant]
  23. MICONAZOLE NITRATE [Concomitant]
  24. VITAMEFREN [Concomitant]
  25. STEROFUNDIN [Concomitant]
  26. CEFUROXIME [Concomitant]
  27. GLUCOSE [Concomitant]
  28. AMIKACIN SULFATE [Concomitant]
  29. FLUCONAZOLE [Concomitant]
  30. MEROPENEM [Concomitant]
  31. PEGFILGRASTIM [Concomitant]

REACTIONS (5)
  - AGRANULOCYTOSIS [None]
  - BONE MARROW DEPRESSION [None]
  - HAEMODIALYSIS [None]
  - PANCYTOPENIA [None]
  - SEPTIC SHOCK [None]
